FAERS Safety Report 23884143 (Version 1)
Quarter: 2024Q2

REPORT INFORMATION
  Report Type: Spontaneous
  Country: US (occurrence: None)
  Receive Date: 20240521
  Receipt Date: 20240521
  Transmission Date: 20240715
  Serious: No
  Sender: FDA-Public Use
  Company Number: None

PATIENT
  Age: 39 Year
  Sex: Male

DRUGS (2)
  1. YUFLYMA [Suspect]
     Active Substance: ADALIMUMAB-AATY
     Indication: Crohn^s disease
     Dosage: OTHER FREQUENCY : DAY 0;?160 MG DAY 0 AND 80 MG DAY 14
     Route: 058
     Dates: start: 20240430
  2. YUFLYMA [Suspect]
     Active Substance: ADALIMUMAB-AATY
     Dosage: OTHER FREQUENCY : DAY 14;?

REACTIONS (2)
  - Diarrhoea [None]
  - Blister [None]

NARRATIVE: CASE EVENT DATE: 20240517
